FAERS Safety Report 5836430-0 (Version None)
Quarter: 2008Q3

REPORT INFORMATION
  Report Type: 
  Country: None (occurrence: None)
  Receive Date: 20080807
  Receipt Date: 20080725
  Transmission Date: 20090109
  Serious: Yes (Disabling)
  Sender: FDA-Public Use
  Company Number: PHRM2008FR01484

PATIENT
  Sex: Female

DRUGS (3)
  1. ZOMETA [Suspect]
     Indication: METASTASES TO BONE
     Route: 042
     Dates: start: 20040201
  2. NAVELBINE [Concomitant]
     Indication: BREAST CANCER METASTATIC
  3. XELODA [Concomitant]
     Indication: BREAST CANCER METASTATIC

REACTIONS (9)
  - BONE DISORDER [None]
  - IMPAIRED HEALING [None]
  - INFECTION [None]
  - OSTEONECROSIS [None]
  - PAIN IN JAW [None]
  - PERIODONTITIS [None]
  - PURULENT DISCHARGE [None]
  - TOOTH DISORDER [None]
  - TOOTH EXTRACTION [None]
